FAERS Safety Report 8853159 (Version 6)
Quarter: 2013Q1

REPORT INFORMATION
  Report Type: Spontaneous
  Country: US (occurrence: US)
  Receive Date: 20121022
  Receipt Date: 20130228
  Transmission Date: 20140127
  Serious: Yes (Hospitalization, Other)
  Sender: FDA-Public Use
  Company Number: US-009507513-1210USA006712

PATIENT
  Age: 61 None
  Sex: Male

DRUGS (5)
  1. PEGINTRON [Suspect]
     Indication: HEPATITIS C
     Dosage: 150 MICROGRAM, QW
     Route: 058
     Dates: start: 20121012, end: 20121121
  2. RIBAVIRIN [Suspect]
     Indication: HEPATITIS C
     Dosage: UNK
     Route: 048
     Dates: start: 20041210, end: 20051230
  3. RIBAVIRIN [Suspect]
     Dosage: UNK
     Route: 048
     Dates: start: 20121012, end: 20121121
  4. PEGASYS [Suspect]
     Indication: HEPATITIS C
     Dosage: UNK
     Dates: start: 20041210, end: 20051230
  5. TELAPREVIR [Suspect]
     Indication: HEPATITIS C
     Dosage: UNK
     Dates: start: 20121012, end: 20121121

REACTIONS (14)
  - Oedema [Unknown]
  - Swelling [Unknown]
  - Malaise [Unknown]
  - Blood disorder [Unknown]
  - Chromaturia [Unknown]
  - Hypokalaemia [Unknown]
  - Full blood count decreased [Unknown]
  - Transfusion [Unknown]
  - Magnesium deficiency [Unknown]
  - Protein total decreased [Unknown]
  - Swelling [Unknown]
  - Pruritus [Unknown]
  - Insomnia [Unknown]
  - Therapeutic response decreased [Unknown]
